FAERS Safety Report 10600221 (Version 1)
Quarter: 2014Q4

REPORT INFORMATION
  Report Type: Spontaneous
  Country: US (occurrence: US)
  Receive Date: 20141122
  Receipt Date: 20141122
  Transmission Date: 20150529
  Serious: No
  Sender: FDA-Public Use
  Company Number: US-009507513-1410USA015966

PATIENT
  Age: 20 Year
  Sex: Female
  Weight: 68.27 kg

DRUGS (1)
  1. NEXPLANON [Suspect]
     Active Substance: ETONOGESTREL
     Indication: CONTRACEPTION
     Dosage: 68 MG/1 ROD FOR 3 YEARS
     Route: 059
     Dates: start: 20141022, end: 20141027

REACTIONS (4)
  - Device dislocation [Recovered/Resolved]
  - Implant site bruising [Recovering/Resolving]
  - Implant site irritation [Recovering/Resolving]
  - Implant site pain [Recovering/Resolving]

NARRATIVE: CASE EVENT DATE: 20141022
